FAERS Safety Report 17216443 (Version 1)
Quarter: 2019Q4

REPORT INFORMATION
  Report Type: Spontaneous
  Country: US (occurrence: US)
  Receive Date: 20191230
  Receipt Date: 20191230
  Transmission Date: 20200122
  Serious: Yes (Hospitalization, Other)
  Sender: FDA-Public Use
  Company Number: US-GALDERMA-US19077313

PATIENT
  Age: 58 Year
  Sex: Male

DRUGS (1)
  1. DOXYCYCLINE. [Suspect]
     Active Substance: DOXYCYCLINE
     Indication: PRODUCT USED FOR UNKNOWN INDICATION
     Route: 048

REACTIONS (6)
  - Crystal nephropathy [Recovering/Resolving]
  - Nausea [Recovering/Resolving]
  - Acute kidney injury [Recovering/Resolving]
  - Oedema peripheral [Recovering/Resolving]
  - Renal tubular injury [Recovering/Resolving]
  - Decreased appetite [Recovering/Resolving]
